FAERS Safety Report 12110144 (Version 3)
Quarter: 2016Q2

REPORT INFORMATION
  Report Type: Spontaneous
  Country: JP (occurrence: JP)
  Receive Date: 20160224
  Receipt Date: 20160413
  Transmission Date: 20160815
  Serious: Yes (Hospitalization, Other)
  Sender: FDA-Public Use
  Company Number: JP-JNJFOC-20160222853

PATIENT
  Age: 5 Decade
  Sex: Male

DRUGS (3)
  1. FINIBAX [Suspect]
     Active Substance: DORIPENEM MONOHYDRATE
     Indication: PNEUMONIA
     Route: 041
     Dates: start: 201601, end: 201601
  2. RISPERIDONE. [Suspect]
     Active Substance: RISPERIDONE
     Indication: SCHIZOPHRENIA
     Route: 065
  3. FINIBAX [Suspect]
     Active Substance: DORIPENEM MONOHYDRATE
     Indication: PNEUMONIA
     Route: 041
     Dates: start: 201601, end: 201601

REACTIONS (4)
  - Rash [Not Recovered/Not Resolved]
  - Renal disorder [Unknown]
  - Incorrect dose administered [Unknown]
  - Pneumonia [Not Recovered/Not Resolved]

NARRATIVE: CASE EVENT DATE: 201601
